FAERS Safety Report 8503581-1 (Version None)
Quarter: 2012Q3

REPORT INFORMATION
  Report Type: 
  Country: None (occurrence: None)
  Receive Date: 20120711
  Receipt Date: 20120702
  Transmission Date: 20120928
  Serious: Yes (Other)
  Sender: FDA-Public Use
  Company Number: JP-VERTEX PHARMACEUTICALS INC.-AE-2012-009874

PATIENT
  Age: 59 Year
  Sex: Female

DRUGS (9)
  1. RIBAVIRIN [Concomitant]
     Route: 048
     Dates: start: 20120511
  2. EPADEL [Concomitant]
     Route: 048
     Dates: start: 20120427
  3. FEBURIC [Concomitant]
     Route: 048
     Dates: start: 20120427
  4. LOXONIN [Concomitant]
     Route: 048
  5. RIBAVIRIN [Concomitant]
     Route: 048
     Dates: start: 20120427, end: 20120503
  6. PEGINTERFERON ALFA-2B [Concomitant]
     Route: 058
     Dates: start: 20120427
  7. TELAVIC (TELAPREVIR) [Suspect]
     Indication: HEPATITIS C
     Route: 048
     Dates: start: 20120427
  8. TELAVIC (TELAPREVIR) [Suspect]
     Route: 048
     Dates: start: 20120504
  9. AMOBAN [Concomitant]
     Route: 048

REACTIONS (2)
  - GASTRIC ULCER [None]
  - OFF LABEL USE [None]
